FAERS Safety Report 5298987-0 (Version None)
Quarter: 2007Q1

REPORT INFORMATION
  Report Type: 
  Country: None (occurrence: None)
  Receive Date: 20070328
  Receipt Date: 20070321
  Transmission Date: 20070707
  Serious: Yes (Hospitalization)
  Sender: FDA-Public Use
  Company Number: THYM-11370

PATIENT
  Age: 27 Year
  Sex: Male
  Weight: 70 kg

DRUGS (3)
  1. THYMOGLOBULIN [Suspect]
     Indication: BONE MARROW FAILURE
     Dosage: 3.5 MG/KG QD IV
     Route: 042
     Dates: start: 20070227, end: 20070227
  2. THYMOGLOBULIN [Suspect]
     Indication: BONE MARROW FAILURE
     Dosage: 3.5 MG/KG QD IV
     Route: 042
     Dates: start: 20070302, end: 20070305
  3. NEORAL [Concomitant]

REACTIONS (4)
  - ALANINE AMINOTRANSFERASE INCREASED [None]
  - ASPARTATE AMINOTRANSFERASE INCREASED [None]
  - BLOOD CREATININE INCREASED [None]
  - DISSEMINATED INTRAVASCULAR COAGULATION [None]
